FAERS Safety Report 5925157-2 (Version None)
Quarter: 2008Q4

REPORT INFORMATION
  Report Type: 
  Country: None (occurrence: None)
  Receive Date: 20081020
  Receipt Date: 20081020
  Transmission Date: 20090506
  Serious: Yes (Death)
  Sender: FDA-Public Use
  Company Number: None

PATIENT
  Sex: Male

DRUGS (9)
  1. REVLIMID [Suspect]
     Indication: MULTIPLE MYELOMA
     Dosage: 5MG EVERY OTHER DAY ORALLY
     Route: 048
     Dates: start: 20080512, end: 20081007
  2. FLUOXETINE [Concomitant]
  3. METOPROLOL TARTRATE [Concomitant]
  4. NITROGLYCERIN SL [Concomitant]
  5. HYDROCODONE BITARTRATE + ACETAMINOPHEN [Concomitant]
  6. PREDNISONE TAB [Concomitant]
  7. NYSTATIN-TRIAMCINOLONE OINTMENT [Concomitant]
  8. NITROGLYCERIN CAP [Concomitant]
  9. OMEPRAZOLE [Concomitant]

REACTIONS (1)
  - ILL-DEFINED DISORDER [None]
